FAERS Safety Report 5328510-3 (Version None)
Quarter: 2007Q2

REPORT INFORMATION
  Report Type: 
  Country: None (occurrence: None)
  Receive Date: 20070518
  Receipt Date: 20070420
  Transmission Date: 20071010
  Serious: Yes (Hospitalization, Other)
  Sender: FDA-Public Use
  Company Number: DE-SHR-DE-2007-013068

PATIENT
  Age: 64 Year
  Sex: Male

DRUGS (2)
  1. MAGNEVIST [Suspect]
     Dosage: 20 ML, 1 DOSE
     Route: 037
  2. ISOVIST 240 [Concomitant]
     Dosage: 20 ML, 1 DOSE
     Route: 037

REACTIONS (19)
  - ACALCULIA [None]
  - AGGRESSION [None]
  - ANTEROGRADE AMNESIA [None]
  - CONFUSIONAL STATE [None]
  - COORDINATION ABNORMAL [None]
  - DELIRIUM [None]
  - DISORIENTATION [None]
  - DISTURBANCE IN ATTENTION [None]
  - DYSARTHRIA [None]
  - ENCEPHALOPATHY [None]
  - HALLUCINATIONS, MIXED [None]
  - NAUSEA [None]
  - NYSTAGMUS [None]
  - RESTLESSNESS [None]
  - SOMNOLENCE [None]
  - UNRESPONSIVE TO STIMULI [None]
  - VISION BLURRED [None]
  - VOMITING [None]
  - WRONG DRUG ADMINISTERED [None]
